FAERS Safety Report 7522544-6 (Version None)
Quarter: 2011Q2

REPORT INFORMATION
  Report Type: 
  Country: None (occurrence: None)
  Receive Date: 20110603
  Receipt Date: 20110530
  Transmission Date: 20111010
  Serious: Yes (Life-Threatening, Hospitalization)
  Sender: FDA-Public Use
  Company Number: JP-PFIZER INC-2011103763

PATIENT
  Age: 64 Year
  Sex: Female
  Weight: 41 kg

DRUGS (4)
  1. SUTENT [Suspect]
     Indication: METASTATIC RENAL CELL CARCINOMA
     Dosage: 37.5 MG, 1X/DAY
     Route: 048
     Dates: start: 20110422, end: 20110506
  2. CELECOXIB [Concomitant]
     Indication: ANALGESIC THERAPY
     Dosage: 100 MG, 2X/DAY
     Route: 048
     Dates: start: 20110308, end: 20110516
  3. LANSOPRAZOLE [Concomitant]
     Indication: GASTRIC ULCER
     Dosage: 15 MG, 1X/DAY
     Route: 048
     Dates: start: 20110308
  4. FERROUS CITRATE [Concomitant]
     Indication: ANAEMIA
     Dosage: 15 MG, 2X/DAY
     Route: 048
     Dates: start: 20110308, end: 20110516

REACTIONS (6)
  - OLIGURIA [None]
  - PYREXIA [None]
  - OEDEMA [None]
  - TUBULOINTERSTITIAL NEPHRITIS [None]
  - DEHYDRATION [None]
  - GENERALISED OEDEMA [None]
